FAERS Safety Report 5633502-0 (Version None)
Quarter: 2008Q1

REPORT INFORMATION
  Report Type: 
  Country: None (occurrence: None)
  Receive Date: 20080221
  Receipt Date: 20080211
  Transmission Date: 20080703
  Serious: Yes (Disabling, Other)
  Sender: FDA-Public Use
  Company Number: GB-PFIZER INC-2008011410

PATIENT
  Sex: Female

DRUGS (2)
  1. LUSTRAL [Suspect]
     Route: 048
  2. ALCOHOL [Interacting]

REACTIONS (6)
  - ABNORMAL BEHAVIOUR [None]
  - AGGRESSION [None]
  - AGITATION [None]
  - ALCOHOL INTERACTION [None]
  - BALANCE DISORDER [None]
  - SELF INJURIOUS BEHAVIOUR [None]
